FAERS Safety Report 5690438-7 (Version None)
Quarter: 2008Q2

REPORT INFORMATION
  Report Type: 
  Country: None (occurrence: None)
  Receive Date: 20080401
  Receipt Date: 20080325
  Transmission Date: 20081010
  Serious: Yes (Other)
  Sender: FDA-Public Use
  Company Number: JP-AVENTIS-200810968JP

PATIENT
  Age: 11 Year

DRUGS (1)
  1. ALLEGRA [Suspect]
     Route: 048
     Dates: start: 20070101, end: 20080301

REACTIONS (2)
  - CONVULSION [None]
  - LOSS OF CONSCIOUSNESS [None]
